FAERS Safety Report 9199821 (Version 1)
Quarter: 2013Q1

REPORT INFORMATION
  Report Type: Spontaneous
  Country: US (occurrence: US)
  Receive Date: 20130329
  Receipt Date: 20130329
  Transmission Date: 20140127
  Serious: Yes (Hospitalization, Other)
  Sender: FDA-Public Use
  Company Number: US-ABBOTT-13P-163-1067051-00

PATIENT
  Age: 44 None
  Sex: Female

DRUGS (2)
  1. HUMIRA [Suspect]
     Indication: PSORIASIS
     Dates: start: 201210
  2. HUMIRA [Suspect]
     Dates: start: 201212

REACTIONS (19)
  - Ovarian cyst [Recovered/Resolved]
  - Shock [Recovered/Resolved]
  - Oxygen supplementation [Recovered/Resolved]
  - Blood glucose decreased [Recovered/Resolved]
  - Renal disorder [Not Recovered/Not Resolved]
  - Amnesia [Not Recovered/Not Resolved]
  - Abdominal pain [Recovered/Resolved]
  - Hypertension [Recovered/Resolved]
  - Syncope [Recovered/Resolved]
  - Hepatitis C [Unknown]
  - Blood glucose abnormal [Not Recovered/Not Resolved]
  - Mental disorder [Recovered/Resolved]
  - Urinary retention [Not Recovered/Not Resolved]
  - Dysuria [Recovering/Resolving]
  - Diabetes mellitus [Not Recovered/Not Resolved]
  - Wrong technique in drug usage process [Recovered/Resolved]
  - Local swelling [Recovering/Resolving]
  - Cystitis [Not Recovered/Not Resolved]
  - Hepatitis [Recovered/Resolved]
